FAERS Safety Report 15628243 (Version 10)
Quarter: 2019Q1

REPORT INFORMATION
  Report Type: Report from Study
  Country: BR (occurrence: BR)
  Receive Date: 20181116
  Receipt Date: 20190129
  Transmission Date: 20190417
  Serious: Yes (Other)
  Sender: FDA-Public Use
  Company Number: PHHY2018BR155044

PATIENT
  Age: 32 Year
  Sex: Male
  Weight: 80 kg

DRUGS (6)
  1. RITALIN LA [Suspect]
     Active Substance: METHYLPHENIDATE HYDROCHLORIDE
     Indication: IMPATIENCE
     Dosage: 1 DF, QD (IN MORNING)
     Route: 048
     Dates: start: 2016
  2. ESCITALOPRAM [Concomitant]
     Active Substance: ESCITALOPRAM OXALATE
     Indication: PAIN
     Dosage: 10 MG, USUALLY AT 6 AM
     Route: 065
  3. RITALIN LA [Suspect]
     Active Substance: METHYLPHENIDATE HYDROCHLORIDE
     Indication: ATTENTION DEFICIT/HYPERACTIVITY DISORDER
     Dosage: 1 DF, QD (IN MORNING)
     Route: 048
     Dates: start: 2016
  4. OMEPRAZOLE. [Suspect]
     Active Substance: OMEPRAZOLE
     Indication: DENGUE FEVER
     Dosage: UNK
     Route: 065
  5. ANTIFLU [Suspect]
     Active Substance: ACETAMINOPHEN\CHLORPHENIRAMINE MALEATE\PHENYLEPHRINE HYDROCHLORIDE
     Indication: DENGUE FEVER
     Dosage: UNK
     Route: 065
  6. EXODUS [Concomitant]
     Indication: ANXIETY
     Dosage: 10 MG, QD (ONE HOUR AFTER RITALIN)
     Route: 048
     Dates: start: 201804

REACTIONS (13)
  - Tendonitis [Recovered/Resolved]
  - Skin exfoliation [Recovered/Resolved]
  - Memory impairment [Recovered/Resolved]
  - Fatigue [Recovered/Resolved]
  - Sinusitis [Unknown]
  - Impatience [Unknown]
  - Myalgia [Recovering/Resolving]
  - Drug ineffective [Unknown]
  - Dengue fever [Unknown]
  - Attention deficit/hyperactivity disorder [Recovered/Resolved]
  - Arthralgia [Unknown]
  - Asthenia [Unknown]
  - Condition aggravated [Recovered/Resolved]

NARRATIVE: CASE EVENT DATE: 20180827
